FAERS Safety Report 6183783-2 (Version None)
Quarter: 2009Q2

REPORT INFORMATION
  Report Type: 
  Country: None (occurrence: None)
  Receive Date: 20090508
  Receipt Date: 20090429
  Transmission Date: 20091009
  Serious: Yes (Hospitalization, Other)
  Sender: FDA-Public Use
  Company Number: CN-BAYER-200918456GPV

PATIENT
  Age: 40 Year
  Sex: Male

DRUGS (2)
  1. GADOPENTETIC DIMEGLUMINE SALT [Suspect]
     Indication: NUCLEAR MAGNETIC RESONANCE IMAGING
     Dosage: TOTAL DAILY DOSE: 15 ML
     Route: 042
  2. DIAZEPAM [Concomitant]
     Indication: NUCLEAR MAGNETIC RESONANCE IMAGING
     Route: 042

REACTIONS (10)
  - ARRHYTHMIA [None]
  - BLOOD PRESSURE DECREASED [None]
  - COUGH [None]
  - DYSPHORIA [None]
  - HYPERHIDROSIS [None]
  - HYPERSENSITIVITY [None]
  - LOSS OF CONSCIOUSNESS [None]
  - PALLOR [None]
  - SNEEZING [None]
  - VOMITING [None]
